FAERS Safety Report 11537317 (Version 1)
Quarter: 2015Q3

REPORT INFORMATION
  Report Type: Spontaneous
  Country: US (occurrence: US)
  Receive Date: 20150922
  Receipt Date: 20150922
  Transmission Date: 20151125
  Serious: No
  Sender: FDA-Public Use
  Company Number: US-APOTEX-2014AP005549

PATIENT
  Age: 66 Year
  Sex: Female

DRUGS (1)
  1. PAROXETINE HYDROCHLORIDE. [Suspect]
     Active Substance: PAROXETINE HYDROCHLORIDE
     Indication: HOT FLUSH
     Dosage: 10 MG, UNKNOWN
     Route: 065
     Dates: start: 201409

REACTIONS (1)
  - Drug ineffective [Unknown]
